FAERS Safety Report 15854548 (Version 1)
Quarter: 2019Q1

REPORT INFORMATION
  Report Type: Spontaneous
  Country: FR (occurrence: FR)
  Receive Date: 20190122
  Receipt Date: 20190122
  Transmission Date: 20190417
  Serious: Yes (Hospitalization)
  Sender: FDA-Public Use
  Company Number: FR-009507513-1901FRA006515

PATIENT
  Age: 65 Year
  Sex: Male

DRUGS (7)
  1. POLARAMINE [Suspect]
     Active Substance: DEXCHLORPHENIRAMINE MALEATE
     Indication: ALLERGY PROPHYLAXIS
     Dosage: 5 MILLIGRAM, CYCLICAL
     Route: 042
     Dates: start: 20181112, end: 20181112
  2. ZOPHREN (ONDANSETRON HYDROCHLORIDE) [Suspect]
     Active Substance: ONDANSETRON HYDROCHLORIDE
     Indication: ANTIEMETIC SUPPORTIVE CARE
     Dosage: 8 MILLIGRAM, CYCLICAL
     Route: 042
     Dates: start: 20181112, end: 20181112
  3. DEXAMETHASONE MYLAN [Suspect]
     Active Substance: DEXAMETHASONE
     Indication: ALLERGY PROPHYLAXIS
     Dosage: 20 MILLIGRAM, CYCLICAL
     Route: 042
     Dates: start: 20181112, end: 20181112
  4. AZANTAC [Suspect]
     Active Substance: RANITIDINE HYDROCHLORIDE
     Indication: ALLERGY PROPHYLAXIS
     Dosage: 50 MILLIGRAM, CYCLICAL
     Route: 042
     Dates: start: 20181112, end: 20181112
  5. KABI PACLITAXEL [Suspect]
     Active Substance: PACLITAXEL
     Indication: LUNG ADENOCARCINOMA STAGE IV
     Dosage: 160 MILLIGRAM, CYCLICAL
     Route: 042
     Dates: start: 20181112, end: 20181112
  6. EMEND [Suspect]
     Active Substance: APREPITANT
     Indication: ANTIEMETIC SUPPORTIVE CARE
     Dosage: 125 MG/DAY AT DAY 1 THEN 80 MG/DAY
     Route: 048
     Dates: start: 20181112, end: 20181115
  7. CARBOPLATIN ACCORD [Suspect]
     Active Substance: CARBOPLATIN
     Indication: LUNG ADENOCARCINOMA STAGE IV
     Dosage: 610 MILLIGRAM, CYCLICAL
     Route: 042
     Dates: start: 20181112, end: 20181112

REACTIONS (4)
  - Bronchospasm [Recovered/Resolved]
  - Dyspnoea [Recovered/Resolved]
  - Hypersensitivity [Recovered/Resolved]
  - Hypotension [Recovered/Resolved]

NARRATIVE: CASE EVENT DATE: 20181112
